FAERS Safety Report 6957861-1 (Version None)
Quarter: 2010Q3

REPORT INFORMATION
  Report Type: 
  Country: None (occurrence: None)
  Receive Date: 20100831
  Receipt Date: 20100818
  Transmission Date: 20110219
  Serious: Yes (Hospitalization, Other)
  Sender: FDA-Public Use
  Company Number: US-BAYER-200936024NA

PATIENT
  Age: 65 Year
  Sex: Female

DRUGS (3)
  1. BETASERON [Suspect]
     Indication: MULTIPLE SCLEROSIS
     Route: 058
     Dates: start: 20000427, end: 20090820
  2. BETASERON [Suspect]
     Route: 058
     Dates: start: 20091113, end: 20100421
  3. BETASERON [Suspect]
     Dosage: TOTAL DAILY DOSE: 8 MIU
     Route: 058
     Dates: start: 20100505, end: 20100809

REACTIONS (4)
  - BLISTER INFECTED [None]
  - HEADACHE [None]
  - KNEE ARTHROPLASTY [None]
  - WOUND INFECTION [None]
